FAERS Safety Report 8510662 (Version 2)
Quarter: 2012Q4

REPORT INFORMATION
  Report Type: Report from Study
  Country: JP (occurrence: JP)
  Receive Date: 20120413
  Receipt Date: 20120912
  Transmission Date: 20130627
  Serious: Yes (Disabling)
  Sender: FDA-Public Use
  Company Number: JP-ROCHE-1058353

PATIENT
  Age: 83 Year
  Sex: Female

DRUGS (16)
  1. ALTEPLASE [Suspect]
     Indication: EMBOLIC STROKE
     Route: 042
     Dates: start: 20111213, end: 20111213
  2. RADICUT [Concomitant]
     Route: 041
     Dates: start: 20111213, end: 20111226
  3. GLYCEOL [Concomitant]
     Route: 041
     Dates: start: 20111215, end: 20111215
  4. GLYCEOL [Concomitant]
     Route: 041
     Dates: start: 20111216, end: 20111226
  5. GLYCEOL [Concomitant]
     Route: 041
     Dates: start: 20111227, end: 20111229
  6. GLYCEOL [Concomitant]
     Route: 041
     Dates: start: 20111230, end: 20111230
  7. KAYTWO N [Concomitant]
     Route: 051
     Dates: start: 20111215, end: 20111215
  8. RASENAZOLIN [Concomitant]
     Route: 051
     Dates: start: 20111215, end: 20111218
  9. NEXIUM [Concomitant]
     Route: 048
     Dates: start: 20111216
  10. CEFTAZIDIME PENTAHYDRATE [Concomitant]
     Route: 051
     Dates: start: 20111219, end: 20111225
  11. ALBUMIN [Concomitant]
     Route: 051
     Dates: start: 20111222, end: 20111224
  12. LASIX [Concomitant]
     Route: 051
     Dates: start: 20111224, end: 20120102
  13. LASIX [Concomitant]
     Route: 048
     Dates: start: 20120103
  14. SULBACILLINE [Concomitant]
     Route: 051
     Dates: start: 20111225
  15. MAGLAX [Concomitant]
     Route: 048
     Dates: start: 20111226
  16. VASOLAN [Concomitant]
     Route: 048

REACTIONS (2)
  - Cerebral infarction [Not Recovered/Not Resolved]
  - Brain herniation [Recovered/Resolved with Sequelae]
